FAERS Safety Report 8359255-3 (Version None)
Quarter: 2012Q1

REPORT INFORMATION
  Report Type: 
  Country: None (occurrence: None)
  Receive Date: 20111004
  Receipt Date: 20110729
  Transmission Date: 20120608
  Serious: No
  Sender: FDA-Public Use
  Company Number: 2011IP000136

PATIENT
  Age: 68 Year
  Sex: Female

DRUGS (5)
  1. SOOTHE /00256502 [Concomitant]
  2. BEPREVE [Suspect]
     Indication: EYE PRURITUS
     Dosage: 1 GTT;  OPH
     Route: 047
     Dates: start: 20110707, end: 20110709
  3. HORMONE CREAM [Concomitant]
  4. CELEBREX [Concomitant]
  5. THYROID TAB [Concomitant]

REACTIONS (4)
  - LACRIMATION INCREASED [None]
  - VITREOUS FLOATERS [None]
  - DRUG INEFFECTIVE [None]
  - PHOTOPSIA [None]
